FAERS Safety Report 24909999 (Version 2)
Quarter: 2025Q2

REPORT INFORMATION
  Report Type: Spontaneous
  Country: MY (occurrence: MY)
  Receive Date: 20250131
  Receipt Date: 20250404
  Transmission Date: 20250717
  Serious: No
  Sender: AMERICAN REGENT
  Company Number: MY-AMERICAN REGENT INC-2025000413

PATIENT
  Age: 22 Year
  Sex: Female

DRUGS (1)
  1. VENOFER [Suspect]
     Active Substance: IRON SUCROSE
     Indication: Anaemia of pregnancy
     Route: 042

REACTIONS (2)
  - Maternal exposure during pregnancy [Unknown]
  - Pruritus [Recovering/Resolving]
